FAERS Safety Report 5527589-3 (Version None)
Quarter: 2007Q4

REPORT INFORMATION
  Report Type: 
  Country: None (occurrence: None)
  Receive Date: 20071128
  Receipt Date: 20071119
  Transmission Date: 20080405
  Serious: Yes (Hospitalization, Other)
  Sender: FDA-Public Use
  Company Number: US-ELI_LILLY_AND_COMPANY-US200710004244

PATIENT
  Sex: Male
  Weight: 71.429 kg

DRUGS (22)
  1. FORTEO [Suspect]
     Indication: OSTEOPOROSIS
     Dosage: 20 UG, DAILY (1/D)
     Route: 058
     Dates: start: 20061130
  2. ALLOPURINOL [Concomitant]
     Dosage: 300 MG, DAILY (1/D)
     Route: 048
  3. AMIODARONE HYDROCHLORIDE [Concomitant]
     Dosage: 200 MG, 5/W
     Route: 048
  4. BORAGE OIL [Concomitant]
     Dosage: UNK, EACH EVENING
     Route: 048
  5. CELEXA [Concomitant]
     Dosage: 20 MG, DAILY (1/D)
     Route: 048
  6. CENTRUM SILVER [Concomitant]
     Dosage: UNK, DAILY (1/D)
     Route: 048
  7. FISH OIL [Concomitant]
     Dosage: 1000 MG, 2/D
     Route: 048
  8. FUROSEMIDE [Concomitant]
     Dosage: 20 MG, DAILY (1/D)
     Route: 048
  9. GLIPIZIDE [Concomitant]
     Dosage: 10 MG, DAILY (1/D)
     Route: 048
  10. K-DUR 10 [Concomitant]
     Dosage: 10 MEQ, DAILY (1/D)
     Route: 048
  11. LIPITOR [Concomitant]
     Dosage: 20 MG, DAILY (1/D)
     Route: 048
  12. LORAZEPAM [Concomitant]
     Dosage: 0.5 MG, 3/D
     Route: 048
  13. METFORMIN HCL [Concomitant]
     Dosage: 500 MG, DAILY (1/D)
     Route: 048
  14. OMEPRAZOLE [Concomitant]
     Dosage: 20 MG, DAILY (1/D)
     Route: 048
  15. SLOW-MAG [Concomitant]
     Dosage: 64 MEQ, 2/D
     Route: 048
  16. SOTALOL HYDROCHLORIDE [Concomitant]
     Dosage: 80 MG, DAILY (1/D)
     Route: 048
  17. SYNTHROID [Concomitant]
     Dosage: 88 UG, DAILY (1/D)
     Route: 048
  18. ASCORBIC ACID [Concomitant]
     Dosage: 1000 MG, 2/D
  19. VITAMIN D [Concomitant]
     Dosage: 400 IU, DAILY (1/D)
     Route: 048
  20. COUMADIN [Concomitant]
     Dosage: 2 MG, UNK
  21. PERCOCET                                /CAN/ [Concomitant]
     Dosage: 325 MG, EVERY 4 HRS
     Route: 048
  22. PERCOCET                                /CAN/ [Concomitant]
     Dosage: 5 MG, EVERY 4 HRS
     Route: 048

REACTIONS (11)
  - ABDOMINAL DISTENSION [None]
  - COUGH [None]
  - DEVICE MALFUNCTION [None]
  - DIZZINESS [None]
  - FALL [None]
  - HEART RATE IRREGULAR [None]
  - HIP FRACTURE [None]
  - HYPOTENSION [None]
  - INSOMNIA [None]
  - PARANASAL SINUS HYPERSECRETION [None]
  - RHINORRHOEA [None]
